FAERS Safety Report 13022840 (Version 1)
Quarter: 2016Q4

REPORT INFORMATION
  Report Type: Spontaneous
  Country: AT (occurrence: AT)
  Receive Date: 20161213
  Receipt Date: 20161213
  Transmission Date: 20170207
  Serious: Yes (Hospitalization, Other)
  Sender: FDA-Public Use
  Company Number: AT-SA-2016SA222910

PATIENT
  Sex: Male

DRUGS (2)
  1. LEMTRADA [Suspect]
     Active Substance: ALEMTUZUMAB
     Indication: MULTIPLE SCLEROSIS
     Route: 042
     Dates: start: 20150707, end: 20150712
  2. METASOL [Concomitant]
     Active Substance: BENZOPHENONE\HYDROQUINONE

REACTIONS (13)
  - Leukopenia [Unknown]
  - Lymphopenia [Unknown]
  - Sensory disturbance [Unknown]
  - Oral herpes [Unknown]
  - Liver function test abnormal [Unknown]
  - Constipation [Unknown]
  - Hypoaesthesia [Recovered/Resolved]
  - Fine motor skill dysfunction [Recovered/Resolved]
  - Mobility decreased [Recovered/Resolved]
  - Headache [Recovered/Resolved]
  - Hepatosplenomegaly [Unknown]
  - Febrile infection [Unknown]
  - Abdominal symptom [Unknown]

NARRATIVE: CASE EVENT DATE: 201507
